FAERS Safety Report 7792812 (Version 2)
Quarter: 2013Q2

REPORT INFORMATION
  Report Type: Spontaneous
  Country: FR (occurrence: FR)
  Receive Date: 20110131
  Receipt Date: 20130503
  Transmission Date: 20140414
  Serious: Yes (Death, Hospitalization)
  Sender: FDA-Public Use
  Company Number: FR-PFIZER INC-2007056725

PATIENT
  Age: 35 Year
  Sex: Male

DRUGS (8)
  1. ZYVOXID [Suspect]
     Dosage: 600 MG, 2X/DAY
     Route: 042
     Dates: start: 20070528, end: 20070605
  2. TAZOCILLINE [Suspect]
     Indication: OESOPHAGEAL VARICES HAEMORRHAGE
     Dosage: 4 G, 3X/DAY
     Route: 042
     Dates: start: 20070526, end: 20070605
  3. INEXIUM [Suspect]
     Indication: VARICES OESOPHAGEAL
     Dosage: 40 MG, 2X/DAY
     Route: 042
     Dates: start: 20070524
  4. SOLU-MEDROL [Concomitant]
     Dosage: UNK
     Dates: start: 20070526
  5. SANDOSTATINE [Concomitant]
     Dosage: UNK
     Dates: start: 20070524, end: 20070530
  6. VITAMIN B1 AND B6 [Concomitant]
     Dosage: UNK
     Dates: start: 20070524
  7. LASILIX [Concomitant]
     Dosage: UNK
     Dates: start: 20070530, end: 20070531
  8. LASILIX [Concomitant]
     Dosage: UNK
     Dates: start: 20070604

REACTIONS (10)
  - Hepatic encephalopathy [Fatal]
  - Hypotension [Fatal]
  - Oliguria [Fatal]
  - Lactic acidosis [Fatal]
  - Renal failure [Fatal]
  - Disseminated intravascular coagulation [Fatal]
  - Multi-organ failure [Fatal]
  - Acute respiratory distress syndrome [Fatal]
  - Thrombocytopenia [Not Recovered/Not Resolved]
  - Condition aggravated [Not Recovered/Not Resolved]
